FAERS Safety Report 15330650 (Version 1)
Quarter: 2018Q3

REPORT INFORMATION
  Report Type: Report from Study
  Country: US (occurrence: US)
  Receive Date: 20180829
  Receipt Date: 20180829
  Transmission Date: 20181010
  Serious: Yes (Hospitalization)
  Sender: FDA-Public Use
  Company Number: US-MYLANLABS-2018M1063599

PATIENT
  Sex: Female

DRUGS (1)
  1. GLATIRAMER ACETATE INJECTION [Suspect]
     Active Substance: GLATIRAMER ACETATE
     Indication: RELAPSING-REMITTING MULTIPLE SCLEROSIS
     Dosage: 40 MG, 3XW

REACTIONS (6)
  - White blood cell count decreased [Unknown]
  - Pyrexia [Unknown]
  - Dehydration [Unknown]
  - Chills [Unknown]
  - Lethargy [Unknown]
  - Hepatic enzyme increased [Unknown]
